FAERS Safety Report 21244797 (Version 1)
Quarter: 2022Q3

REPORT INFORMATION
  Report Type: Spontaneous
  Country: JP (occurrence: JP)
  Receive Date: 20220823
  Receipt Date: 20220823
  Transmission Date: 20221027
  Serious: Yes (Hospitalization)
  Sender: FDA-Public Use
  Company Number: JP-CHUGAI-2022032298

PATIENT
  Age: 70 Year
  Sex: Male
  Weight: 65 kg

DRUGS (13)
  1. ACTEMRA [Suspect]
     Active Substance: TOCILIZUMAB
     Indication: COVID-19
     Route: 041
     Dates: start: 20210908, end: 20210908
  2. DECADRON [Suspect]
     Active Substance: DEXAMETHASONE
     Indication: COVID-19
     Route: 048
     Dates: start: 20210907, end: 20210913
  3. CALONAL [Concomitant]
     Active Substance: ACETAMINOPHEN
     Route: 048
  4. POLAPREZINC [Concomitant]
     Active Substance: POLAPREZINC
     Route: 048
  5. NEXIUM [Concomitant]
     Active Substance: ESOMEPRAZOLE MAGNESIUM
     Route: 048
  6. TENELIGLIPTIN [Concomitant]
     Active Substance: TENELIGLIPTIN
     Route: 048
  7. LEVOTHYROXINE [Concomitant]
     Active Substance: LEVOTHYROXINE
     Route: 048
  8. ROZEREM [Concomitant]
     Active Substance: RAMELTEON
     Route: 048
  9. DAYVIGO [Concomitant]
     Active Substance: LEMBOREXANT
     Route: 048
  10. LUNESTA [Concomitant]
     Active Substance: ESZOPICLONE
     Route: 048
  11. MAGNESIUM OXIDE [Concomitant]
     Active Substance: MAGNESIUM OXIDE
     Route: 048
  12. AMITIZA [Concomitant]
     Active Substance: LUBIPROSTONE
     Route: 048
  13. VEKLURY [Concomitant]
     Active Substance: REMDESIVIR
     Route: 041

REACTIONS (3)
  - Pneumothorax [Unknown]
  - Infectious pleural effusion [Recovered/Resolved]
  - Off label use [Unknown]

NARRATIVE: CASE EVENT DATE: 20210908
